FAERS Safety Report 6914265-5 (Version None)
Quarter: 2010Q3

REPORT INFORMATION
  Report Type: 
  Country: None (occurrence: None)
  Receive Date: 20100809
  Receipt Date: 20100729
  Transmission Date: 20110219
  Serious: Yes (Other)
  Sender: FDA-Public Use
  Company Number: B0547849A

PATIENT
  Sex: Female

DRUGS (6)
  1. ARIXTRA [Suspect]
     Indication: THROMBOSIS PROPHYLAXIS
     Dosage: 2.5MG PER DAY
     Route: 058
     Dates: start: 20080822, end: 20080822
  2. ROPION [Suspect]
     Indication: ANALGESIC THERAPY
     Dosage: 250MG PER DAY
     Dates: start: 20080821, end: 20080822
  3. VOLTAREN [Suspect]
     Indication: ANALGESIC THERAPY
     Dosage: 150MG PER DAY
     Dates: start: 20080822
  4. PRIMPERAN TAB [Suspect]
     Indication: VOMITING
     Dosage: 10MG PER DAY
     Dates: start: 20080821
  5. CEFMETAZON [Suspect]
     Indication: INFECTION PROPHYLAXIS
     Dosage: 2G PER DAY
     Dates: start: 20080821, end: 20080822
  6. LOXONIN [Concomitant]
     Indication: ANALGESIC THERAPY
     Dosage: 180MG PER DAY
     Route: 048
     Dates: start: 20080822

REACTIONS (11)
  - ABDOMINAL PAIN [None]
  - BLOOD CREATININE INCREASED [None]
  - DECREASED APPETITE [None]
  - FAECES DISCOLOURED [None]
  - GASTROINTESTINAL HAEMORRHAGE [None]
  - HAEMATOCRIT DECREASED [None]
  - HAEMOGLOBIN DECREASED [None]
  - NAUSEA [None]
  - PLATELET COUNT DECREASED [None]
  - RED BLOOD CELL COUNT DECREASED [None]
  - SMALL INTESTINAL HAEMORRHAGE [None]
